FAERS Safety Report 13322565 (Version 1)
Quarter: 2017Q1

REPORT INFORMATION
  Report Type: Spontaneous
  Country: US (occurrence: US)
  Receive Date: 20170310
  Receipt Date: 20170310
  Transmission Date: 20170428
  Serious: Yes (Other)
  Sender: FDA-Public Use
  Company Number: US-ELI_LILLY_AND_COMPANY-US201607010098

PATIENT
  Age: 61 Year
  Sex: Female
  Weight: 107 kg

DRUGS (3)
  1. PROZAC [Concomitant]
     Active Substance: FLUOXETINE HYDROCHLORIDE
     Dosage: 10 MG, UNK
  2. PROZAC [Concomitant]
     Active Substance: FLUOXETINE HYDROCHLORIDE
     Indication: DEPRESSION
     Dosage: 10 MG, UNK
  3. CYMBALTA [Suspect]
     Active Substance: DULOXETINE HYDROCHLORIDE
     Indication: PRODUCT USED FOR UNKNOWN INDICATION
     Dosage: 60 MG, QD
     Route: 065

REACTIONS (15)
  - Dizziness [Unknown]
  - Fatigue [Unknown]
  - Affect lability [Unknown]
  - Sensory disturbance [Unknown]
  - Drug withdrawal syndrome [Unknown]
  - Irritability [Unknown]
  - Insomnia [Unknown]
  - Agitation [Unknown]
  - Hyperhidrosis [Unknown]
  - Vertigo [Unknown]
  - Suicidal ideation [Unknown]
  - Dysphoria [Unknown]
  - Confusional state [Unknown]
  - Anxiety [Unknown]
  - Lethargy [Unknown]

NARRATIVE: CASE EVENT DATE: 201511
